FAERS Safety Report 6156866-0 (Version None)
Quarter: 2009Q2

REPORT INFORMATION
  Report Type: 
  Country: None (occurrence: None)
  Receive Date: 20090410
  Receipt Date: 20090410
  Transmission Date: 20091009
  Serious: Yes (Life-Threatening, Disabling)
  Sender: FDA-Public Use
  Company Number: None

PATIENT
  Age: 83 Year
  Sex: Female
  Weight: 49.8957 kg

DRUGS (2)
  1. NITROFURANTOIN [Suspect]
     Indication: URINARY TRACT DISORDER
     Dosage: 50 MG / PER DAY
     Dates: start: 20070101
  2. CIPROFLOXACIN [Suspect]
     Indication: DIVERTICULITIS
     Dosage: 500 MG 2X DAILY 10 DAYS STOPPED AFTER 7 DAY
     Dates: start: 20080628, end: 20080704

REACTIONS (4)
  - DIVERTICULITIS [None]
  - INTERSTITIAL LUNG DISEASE [None]
  - PULMONARY FIBROSIS [None]
  - PULMONARY HYPERTENSION [None]
